FAERS Safety Report 5814696-0 (Version None)
Quarter: 2008Q3

REPORT INFORMATION
  Report Type: 
  Country: None (occurrence: None)
  Receive Date: 20080718
  Receipt Date: 20080415
  Transmission Date: 20090109
  Serious: No
  Sender: FDA-Public Use
  Company Number: US-KINGPHARMUSA00001-K200800457

PATIENT

DRUGS (2)
  1. LEVOXYL [Suspect]
     Dosage: UNK, UNK
     Route: 048
     Dates: start: 20071201
  2. FENTANYL CITRATE [Interacting]
     Indication: PAIN
     Dosage: UNK, UNK
     Route: 062

REACTIONS (1)
  - DRUG INTERACTION [None]
